FAERS Safety Report 17632011 (Version 1)
Quarter: 2020Q2

REPORT INFORMATION
  Report Type: Spontaneous
  Country: US (occurrence: US)
  Receive Date: 20200403
  Receipt Date: 20200403
  Transmission Date: 20200713
  Serious: Yes (Life-Threatening)
  Sender: FDA-Public Use
  Company Number: None

PATIENT
  Age: 35 Year
  Sex: Female
  Weight: 74.84 kg

DRUGS (5)
  1. CLONIDINE. [Concomitant]
     Active Substance: CLONIDINE
  2. VYVANSE [Concomitant]
     Active Substance: LISDEXAMFETAMINE DIMESYLATE
  3. GABAPENTIN CAP [Suspect]
     Active Substance: GABAPENTIN
     Indication: PRODUCT USED FOR UNKNOWN INDICATION
     Dosage: ?          QUANTITY:2PILLS 3TIMES ADAY;OTHER FREQUENCY:3 TIMES DAILY;?
     Route: 048
     Dates: start: 20190719, end: 20191010
  4. CLONAZEPAM. [Concomitant]
     Active Substance: CLONAZEPAM
  5. TRINTELLIX [Concomitant]
     Active Substance: VORTIOXETINE HYDROBROMIDE

REACTIONS (5)
  - Dizziness [None]
  - Cold sweat [None]
  - Pulse absent [None]
  - Hyperhidrosis [None]
  - Heart rate decreased [None]

NARRATIVE: CASE EVENT DATE: 20191029
